FAERS Safety Report 6388306-0 (Version None)
Quarter: 2009Q4

REPORT INFORMATION
  Report Type: 
  Country: None (occurrence: None)
  Receive Date: 20091005
  Receipt Date: 20090928
  Transmission Date: 20100525
  Serious: Yes (Other)
  Sender: FDA-Public Use
  Company Number: US-AMGEN-US324354

PATIENT
  Sex: Female
  Weight: 61.3 kg

DRUGS (4)
  1. NPLATE [Suspect]
     Indication: IDIOPATHIC THROMBOCYTOPENIC PURPURA
     Dates: start: 20081118
  2. COUMADIN [Concomitant]
  3. PREDNISONE TAB [Concomitant]
  4. ACTONEL [Concomitant]

REACTIONS (8)
  - CONTUSION [None]
  - ENDODONTIC PROCEDURE [None]
  - EPISTAXIS [None]
  - HEADACHE [None]
  - ORAL PAIN [None]
  - PLATELET COUNT ABNORMAL [None]
  - TOOTH EXTRACTION [None]
  - TOOTH INFECTION [None]
